FAERS Safety Report 5904489-8 (Version None)
Quarter: 2008Q3

REPORT INFORMATION
  Report Type: 
  Country: None (occurrence: None)
  Receive Date: 20080930
  Receipt Date: 20080930
  Transmission Date: 20090109
  Serious: Yes (Hospitalization)
  Sender: FDA-Public Use
  Company Number: None

PATIENT
  Age: 65 Year
  Sex: Male

DRUGS (2)
  1. ENOXAPARIN SODIUM [Suspect]
     Indication: PULMONARY EMBOLISM
     Dosage: 140 MG BID SQ
     Route: 058
     Dates: start: 20080910, end: 20080911
  2. WARFARIN SODIUM [Suspect]
     Dosage: 5 MG EVERY DAY PO
     Route: 048
     Dates: start: 20080910, end: 20080911

REACTIONS (7)
  - BENIGN PROSTATIC HYPERPLASIA [None]
  - BLADDER NECK OBSTRUCTION [None]
  - CALCULUS BLADDER [None]
  - HAEMATURIA [None]
  - HAEMORRHAGE [None]
  - RENAL FAILURE ACUTE [None]
  - URINARY RETENTION [None]
